FAERS Safety Report 8528494 (Version 4)
Quarter: 2013Q2

REPORT INFORMATION
  Report Type: Report from Study
  Country: UA (occurrence: UA)
  Receive Date: 20120424
  Receipt Date: 20130423
  Transmission Date: 20140414
  Serious: Yes (Hospitalization)
  Sender: FDA-Public Use
  Company Number: UA-TEVA-332620ISR

PATIENT
  Age: 71 Year
  Sex: Female
  Weight: 39.5 kg

DRUGS (29)
  1. TL011 [Suspect]
     Indication: DIFFUSE LARGE B-CELL LYMPHOMA
     Dosage: DOUBLE BLIND: TL011  IV VS. MABTHERA
     Route: 042
     Dates: start: 20120326
  2. MABTHERA [Suspect]
     Indication: DIFFUSE LARGE B-CELL LYMPHOMA
     Dosage: DOUBLE BLIND: TL011 VS. MABTHERA
     Route: 042
     Dates: start: 20120326
  3. DOXORUBICIN [Suspect]
     Dosage: 70 MG
     Dates: start: 20120326
  4. CYCLOPHOSPHAMIDE [Suspect]
     Dosage: 1050MG
     Dates: start: 20120326
  5. VINCRISTINE [Suspect]
     Dosage: 2 MG
     Dates: start: 20120326
  6. PREDNISOLONE [Suspect]
     Dosage: 60 MG/DAY
     Dates: start: 20120326, end: 20120330
  7. PARACETAMOL [Concomitant]
     Indication: PREMEDICATION
     Dosage: 1000 MILLIGRAM DAILY;
     Route: 048
     Dates: start: 20120326, end: 20120326
  8. ONDANSETRON [Concomitant]
     Indication: NAUSEA
     Dosage: 8 MILLIGRAM DAILY;
     Route: 042
     Dates: start: 20120326, end: 20120326
  9. ONDANSETRON [Concomitant]
     Indication: NAUSEA
     Dosage: 8 MILLIGRAM DAILY;
     Route: 042
     Dates: start: 20120327, end: 20120327
  10. ONDANSETRON [Concomitant]
     Dosage: 16 MILLIGRAM DAILY;
     Route: 042
     Dates: start: 20120328, end: 20120329
  11. ONDANSETRON [Concomitant]
     Dosage: 24 MILLIGRAM DAILY;
     Route: 048
     Dates: start: 20120329, end: 20120401
  12. LANSOPRAZOLE [Concomitant]
     Indication: PROPHYLAXIS
     Dosage: 60 MILLIGRAM DAILY;
     Route: 048
     Dates: start: 20120326, end: 20120328
  13. POTASSIUM MAGNESIUM ASPARTATE [Concomitant]
     Indication: HYPOKALAEMIA
     Route: 048
     Dates: start: 20120326, end: 20120328
  14. POTASSIUM MAGNESIUM ASPARTATE [Concomitant]
     Dosage: 20 MILLIGRAM DAILY;
     Route: 042
     Dates: start: 20120329, end: 20120330
  15. TRIFAS [Concomitant]
     Indication: OEDEMA PERIPHERAL
     Dosage: 1 TAB QOD
     Route: 048
     Dates: start: 20120320, end: 20120322
  16. ALLOPURINOL [Concomitant]
     Indication: TUMOUR LYSIS SYNDROME
     Route: 048
     Dates: start: 20120319
  17. RED BLOOD CELLS ADMINISTRATION [Concomitant]
     Indication: ANAEMIA
     Dosage: 180 ML DAILY;
     Route: 042
     Dates: start: 20120322, end: 20120322
  18. DIPHENHYDRAMINE [Concomitant]
     Indication: PREMEDICATION
     Dosage: 5 ML DAILY;
     Route: 042
     Dates: start: 20120326, end: 20120326
  19. DIPHENHYDRAMINE [Concomitant]
     Indication: HYPERSENSITIVITY
  20. CLEMASTINE [Concomitant]
     Indication: HYPERSENSITIVITY
     Dosage: 2 ML DAILY;
     Route: 042
     Dates: start: 20120326, end: 20120326
  21. DEXAMETHASONE [Concomitant]
     Indication: HYPERSENSITIVITY
     Dosage: 4 MILLIGRAM DAILY;
     Route: 042
     Dates: start: 20120326, end: 20120326
  22. CALCIUM GLUCONATE [Concomitant]
     Indication: HYPERSENSITIVITY
     Dosage: 10 ML DAILY;
     Route: 042
     Dates: start: 20120326, end: 20120326
  23. TRIMETAZIDINE DIHYDROCHLORIDE [Concomitant]
     Indication: MYOCARDIAL ISCHAEMIA
     Dosage: 2 TABLET DAILY;
     Route: 048
     Dates: start: 20120326
  24. THIOTRIAZOLINUM 2.5% [Concomitant]
     Indication: CARDIOVASCULAR EVENT PROPHYLAXIS
     Dosage: 4 ML DAILY;
     Route: 042
     Dates: start: 20120326, end: 20120401
  25. SOL. SIBASONI 0.5 [Concomitant]
     Indication: NAUSEA
     Dosage: 2 ML DAILY;
     Route: 030
     Dates: start: 20120328, end: 20120328
  26. DICLOFENAC [Concomitant]
     Indication: OSTEOCHONDROSIS
     Dosage: 3 ML DAILY;
     Route: 030
     Dates: start: 20120328, end: 20120328
  27. OMEPRAZOLE [Concomitant]
     Indication: PROPHYLAXIS
     Dosage: 20 MILLIGRAM DAILY;
     Route: 042
     Dates: start: 20120329, end: 20120330
  28. ACICLOVIR [Concomitant]
     Indication: PROPHYLAXIS
     Dosage: 1000 MILLIGRAM DAILY;
     Route: 048
     Dates: start: 20120402
  29. COTRIMOXAZOL [Concomitant]
     Indication: PROPHYLAXIS
     Dosage: BID 3 TIMES PER WEEK
     Route: 048
     Dates: start: 20120402

REACTIONS (2)
  - Tumour lysis syndrome [Recovered/Resolved]
  - Weight decreased [Recovered/Resolved with Sequelae]
